FAERS Safety Report 4641675-1 (Version None)
Quarter: 2005Q2

REPORT INFORMATION
  Report Type: 
  Country: None (occurrence: None)
  Receive Date: 20050420
  Receipt Date: 20050408
  Transmission Date: 20051028
  Serious: Yes (Hospitalization)
  Sender: FDA-Public Use
  Company Number: 05P-056-0295729-00

PATIENT
  Age: 82 Year
  Sex: Female

DRUGS (7)
  1. TRICOR [Suspect]
     Dosage: 160 MG, 1 IN 1 D, ORAL
     Route: 048
  2. ACEPROMAZINE [Suspect]
     Dosage: 20 MG, 1 IN 1 D
     Dates: end: 20050215
  3. EUPANTOL                 (PANTOPRAZOLE) [Concomitant]
  4. CANDESARTAN CILEXETIL [Concomitant]
  5. AMLODIPINE BESYLATE [Concomitant]
  6. NIMESULIDE [Concomitant]
  7. ZOPICLONE [Concomitant]

REACTIONS (14)
  - ANAEMIA [None]
  - ANTI-SS-A ANTIBODY POSITIVE [None]
  - ANTI-SS-B ANTIBODY POSITIVE [None]
  - ANTINUCLEAR ANTIBODY POSITIVE [None]
  - ARTHRALGIA [None]
  - ASTHENIA [None]
  - BLOOD CREATININE INCREASED [None]
  - HYPERPROTEINAEMIA [None]
  - PAIN IN EXTREMITY [None]
  - PYREXIA [None]
  - RED BLOOD CELL ROULEAUX FORMATION PRESENT [None]
  - RHEUMATOID FACTOR POSITIVE [None]
  - SYSTEMIC LUPUS ERYTHEMATOSUS [None]
  - WEIGHT DECREASED [None]
